FAERS Safety Report 7266304-2 (Version None)
Quarter: 2011Q1

REPORT INFORMATION
  Report Type: 
  Country: None (occurrence: None)
  Receive Date: 20110131
  Receipt Date: 20110114
  Transmission Date: 20110831
  Serious: Yes (Hospitalization, Disabling, Other)
  Sender: FDA-Public Use
  Company Number: US-BAYER-201016964NA

PATIENT
  Sex: Female
  Weight: 91 kg

DRUGS (22)
  1. LIDOCAINE [Suspect]
     Route: 014
     Dates: start: 20080828, end: 20080828
  2. OPTIRAY 350 [Suspect]
     Dosage: 5-10 ML
     Route: 014
     Dates: start: 20080828, end: 20080828
  3. ONDANSETRON [Concomitant]
  4. HYDROCHLOROTHIAZIDE [Concomitant]
  5. CELEXA [Concomitant]
  6. CLONIDINE [Concomitant]
  7. NIFEDIPINE [Concomitant]
  8. ATENOLOL [Concomitant]
  9. PROAIR HFA [Concomitant]
  10. UNCODEABLE ^UNKNOWN MANUFACTURER^ [Concomitant]
  11. CLIMARA [Concomitant]
  12. RELPAX [Concomitant]
     Indication: MIGRAINE
  13. NORMAL SALINE [Suspect]
     Dosage: GIVEN WITH 1 CC OF MAGNEVIST
     Route: 014
     Dates: start: 20080828, end: 20080828
  14. FAMOTIDINE [Concomitant]
  15. SIMVASTATIN [Concomitant]
  16. MAGNEVIST [Suspect]
     Indication: ARTHROGRAM
     Dosage: 1 CC DILUTED WITH 10 ML 0F 0.9% NORMAL SALINE
     Route: 014
     Dates: start: 20080828, end: 20080828
  17. AYGESTIN [Concomitant]
  18. HYDROQUINONE [Concomitant]
  19. BONIVA [Concomitant]
  20. VANCOMYCIN [Concomitant]
  21. VITAMIN D [Concomitant]
  22. CELEBREX [Concomitant]

REACTIONS (6)
  - RENAL TUBULAR NECROSIS [None]
  - SEPTIC ARTHRITIS STAPHYLOCOCCAL [None]
  - ARTHRITIS INFECTIVE [None]
  - GENERAL PHYSICAL HEALTH DETERIORATION [None]
  - RENAL FAILURE ACUTE [None]
  - PAIN [None]
